FAERS Safety Report 5880174-6 (Version None)
Quarter: 2008Q3

REPORT INFORMATION
  Report Type: 
  Country: None (occurrence: None)
  Receive Date: 20080912
  Receipt Date: 20080901
  Transmission Date: 20090109
  Serious: Yes (Other)
  Sender: FDA-Public Use
  Company Number: BR-PFIZER INC-2008073840

PATIENT
  Sex: Male
  Weight: 62 kg

DRUGS (2)
  1. FRONTAL [Suspect]
     Indication: SLEEP DISORDER
     Route: 048
     Dates: start: 20030101
  2. FRONTAL [Suspect]
     Indication: NERVOUSNESS

REACTIONS (1)
  - ERECTION INCREASED [None]
